FAERS Safety Report 9270393 (Version 1)
Quarter: 2013Q2

REPORT INFORMATION
  Report Type: Report from Study
  Country: DE (occurrence: DE)
  Receive Date: 20130503
  Receipt Date: 20130503
  Transmission Date: 20140414
  Serious: Yes (Hospitalization, Other)
  Sender: FDA-Public Use
  Company Number: DE-ABBOTT-12P-062-0948072-00

PATIENT
  Age: 26 Year
  Sex: Female
  Weight: 80 kg

DRUGS (2)
  1. HUMIRA 40 MG/ 0.8 ML PRE-FILLED SYRINGE [Suspect]
     Indication: CROHN^S DISEASE
     Route: 058
     Dates: start: 20090514
  2. ACLASTA [Concomitant]
     Indication: PRODUCT USED FOR UNKNOWN INDICATION

REACTIONS (9)
  - Fistula [Recovered/Resolved]
  - Abdominal wall abscess [Recovered/Resolved]
  - Genital abscess [Recovered/Resolved]
  - Genital abscess [Recovered/Resolved]
  - Enterostomy [Recovered/Resolved]
  - Fistula [Recovered/Resolved]
  - Purulent discharge [Recovered/Resolved]
  - Anal inflammation [Recovered/Resolved]
  - Anal erosion [Recovered/Resolved]
